FAERS Safety Report 7472147-7 (Version None)
Quarter: 2011Q2

REPORT INFORMATION
  Report Type: 
  Country: None (occurrence: None)
  Receive Date: 20110511
  Receipt Date: 20110126
  Transmission Date: 20111010
  Serious: No
  Sender: FDA-Public Use
  Company Number: A0909482A

PATIENT
  Age: 76 Year
  Sex: Female

DRUGS (3)
  1. TYKERB [Suspect]
     Dosage: 5TAB PER DAY
     Route: 048
     Dates: start: 20100601, end: 20110120
  2. HERCEPTIN [Concomitant]
  3. HYZAAR [Concomitant]

REACTIONS (1)
  - CARDIAC DISORDER [None]
